FAERS Safety Report 4629308-1 (Version None)
Quarter: 2005Q2

REPORT INFORMATION
  Report Type: 
  Country: None (occurrence: None)
  Receive Date: 20050405
  Receipt Date: 20050405
  Transmission Date: 20051028
  Serious: Yes (Hospitalization)
  Sender: FDA-Public Use
  Company Number: None

PATIENT
  Age: 71 Year
  Sex: Female
  Weight: 45.3597 kg

DRUGS (2)
  1. BIAXIN [Suspect]
     Indication: PNEUMONIA
  2. ZOCOR [Suspect]
     Indication: HYPERLIPIDAEMIA

REACTIONS (18)
  - ABDOMINAL PAIN [None]
  - ASPARTATE AMINOTRANSFERASE INCREASED [None]
  - ATELECTASIS [None]
  - BLOOD ALKALINE PHOSPHATASE INCREASED [None]
  - BLOOD CREATINE PHOSPHOKINASE INCREASED [None]
  - DEHYDRATION [None]
  - EMPHYSEMA [None]
  - FATIGUE [None]
  - HEPATIC ENZYME INCREASED [None]
  - LOBAR PNEUMONIA [None]
  - MALAISE [None]
  - MUSCULAR WEAKNESS [None]
  - MYOGLOBINURIA [None]
  - NEPHROPATHY [None]
  - RENAL FAILURE ACUTE [None]
  - SPLENIC HAEMATOMA [None]
  - URINARY RETENTION [None]
  - URINARY TRACT INFECTION [None]
